FAERS Safety Report 8161271-1 (Version None)
Quarter: 2012Q1

REPORT INFORMATION
  Report Type: 
  Country: None (occurrence: None)
  Receive Date: 20120222
  Receipt Date: 20120222
  Transmission Date: 20120608
  Serious: No
  Sender: FDA-Public Use
  Company Number: None

PATIENT
  Sex: Female
  Weight: 61.3 kg

DRUGS (1)
  1. ZOMETA [Suspect]
     Dosage: 4 MG

REACTIONS (2)
  - OSTEONECROSIS [None]
  - PROCEDURAL SITE REACTION [None]
